FAERS Safety Report 14322584 (Version 1)
Quarter: 2017Q4

REPORT INFORMATION
  Report Type: Spontaneous
  Country: PT (occurrence: PT)
  Receive Date: 20171225
  Receipt Date: 20171225
  Transmission Date: 20180321
  Serious: Yes (Death, Hospitalization)
  Sender: FDA-Public Use
  Company Number: PHHY2017PT192386

PATIENT
  Age: 68 Year
  Sex: Female

DRUGS (2)
  1. CEFTAZIDIME. [Concomitant]
     Active Substance: CEFTAZIDIME
     Indication: STAPHYLOCOCCUS TEST POSITIVE
     Route: 065
  2. VANCOMYCIN [Suspect]
     Active Substance: VANCOMYCIN
     Indication: STAPHYLOCOCCUS TEST POSITIVE
     Route: 065

REACTIONS (2)
  - Multiple organ dysfunction syndrome [Fatal]
  - Acute kidney injury [Fatal]
